FAERS Safety Report 10143256 (Version 1)
Quarter: 2014Q2

REPORT INFORMATION
  Report Type: Spontaneous
  Country: IN (occurrence: IN)
  Receive Date: 20140430
  Receipt Date: 20140430
  Transmission Date: 20141212
  Serious: Yes (Hospitalization)
  Sender: FDA-Public Use
  Company Number: IN-PAR PHARMACEUTICAL, INC-2014SCPR009030

PATIENT
  Sex: 0

DRUGS (2)
  1. IMIPRAMINE [Suspect]
     Indication: MENTAL DISORDER
     Dosage: 25 MG, / DAY
     Route: 065
  2. IMIPRAMINE [Suspect]
     Indication: SLEEP DISORDER

REACTIONS (1)
  - Interstitial lung disease [Unknown]
